FAERS Safety Report 4385069-5 (Version None)
Quarter: 2004Q2

REPORT INFORMATION
  Report Type: 
  Country: None (occurrence: None)
  Receive Date: 20040624
  Receipt Date: 20040624
  Transmission Date: 20050107
  Serious: Yes (Hospitalization)
  Sender: FDA-Public Use
  Company Number: None

PATIENT
  Sex: Male
  Weight: 155 kg

DRUGS (10)
  1. NAFCILLIN  +  2 GRAMS [Suspect]
     Indication: STAPHYLOCOCCAL BACTERAEMIA
     Dosage: 2 GRAM IV Q6 H
     Route: 042
     Dates: start: 20030321, end: 20030323
  2. WARFARIN SODIUM [Concomitant]
  3. HYDROCODONE BITARTRATE AND ACETAMINOPHEN [Concomitant]
  4. HEPARIN [Concomitant]
  5. INSULIN [Concomitant]
  6. GLYBURIDE [Concomitant]
  7. FOSINOPRIL SODIUM [Concomitant]
  8. OMEPRAZOLE [Concomitant]
  9. SIMVASTATIN [Concomitant]
  10. ENOXAPARIN SODIUM [Concomitant]

REACTIONS (1)
  - RASH [None]
